FAERS Safety Report 7943659-4 (Version None)
Quarter: 2011Q4

REPORT INFORMATION
  Report Type: 
  Country: None (occurrence: None)
  Receive Date: 20111128
  Receipt Date: 20111118
  Transmission Date: 20120403
  Serious: Yes (Disabling)
  Sender: FDA-Public Use
  Company Number: JP-ASTRAZENECA-2011SE06331

PATIENT
  Age: 53 Year
  Sex: Female
  Weight: 51 kg

DRUGS (8)
  1. ROPIVACAINE HYDROCHLORIDE [Suspect]
     Indication: POSTOPERATIVE ANALGESIA
     Route: 008
     Dates: start: 20101203
  2. EMPYNASE P [Concomitant]
     Indication: SWELLING
     Route: 048
     Dates: start: 20101204, end: 20101224
  3. MAGMITT [Concomitant]
     Indication: CONSTIPATION
     Route: 048
     Dates: start: 20101207
  4. STICKZENOL [Concomitant]
     Indication: ANALGESIC THERAPY
     Route: 062
  5. IMIDAPRIL HYDROCHLORIDE [Concomitant]
     Indication: HYPERTENSION
     Route: 048
     Dates: start: 20101204
  6. ISALON [Concomitant]
     Indication: GASTRITIS
     Route: 048
     Dates: start: 20101204, end: 20101224
  7. ROHYPNOL [Concomitant]
     Indication: INSOMNIA
     Route: 048
     Dates: start: 20101203
  8. LAXOBERON [Concomitant]
     Indication: CONSTIPATION
     Route: 048
     Dates: start: 20101201

REACTIONS (1)
  - MONOPLEGIA [None]
